FAERS Safety Report 8107364-6 (Version None)
Quarter: 2012Q1

REPORT INFORMATION
  Report Type: 
  Country: None (occurrence: None)
  Receive Date: 20120202
  Receipt Date: 20120129
  Transmission Date: 20120608
  Serious: Yes (Hospitalization, Other)
  Sender: FDA-Public Use
  Company Number: AT-PFIZER INC-2012023986

PATIENT
  Age: 53 Year
  Sex: Female

DRUGS (13)
  1. NEURONTIN [Suspect]
     Dosage: 2400 MG, DAILY
     Route: 048
     Dates: start: 20100101
  2. SOLIAN [Suspect]
     Dosage: 100 MG, DAILY
     Route: 048
     Dates: start: 20110405, end: 20110408
  3. ESCITALOPRAM [Concomitant]
     Dosage: 10 MG, DAILY
     Route: 048
     Dates: start: 20100101, end: 20110404
  4. ESCITALOPRAM [Concomitant]
     Dosage: 20 MG, DAILY
     Route: 048
     Dates: start: 20110405, end: 20110408
  5. BROMAZEPAM [Concomitant]
     Dosage: 4.5 MG, DAILY
     Route: 048
     Dates: start: 20110412
  6. TRAZODONE HCL [Concomitant]
     Dosage: 150 MG, DAILY
     Dates: start: 20110409
  7. HYDROMORPHONE HCL [Concomitant]
     Dosage: 40 MG, DAILY
     Dates: start: 20100101, end: 20110408
  8. HYDROMORPHONE HCL [Concomitant]
     Dosage: 24 MG, DAILY
     Dates: start: 20110409, end: 20110419
  9. BROMAZEPAM [Concomitant]
     Dosage: 12 MG, DAILY
     Route: 048
     Dates: start: 20110408, end: 20110411
  10. CISORDINOL [Concomitant]
     Dosage: 25 MG, DAILY
     Dates: start: 20110420
  11. HYDROMORPHONE HCL [Concomitant]
     Dosage: 14 MG, DAILY
     Dates: start: 20110420
  12. SOLIAN [Suspect]
     Dosage: 800 MG, DAILY
     Route: 048
     Dates: start: 20110409, end: 20110414
  13. TRAZODONE HCL [Concomitant]
     Dosage: 100 MG, DAILY
     Dates: start: 20100101, end: 20110408

REACTIONS (3)
  - RHABDOMYOLYSIS [None]
  - PAIN IN JAW [None]
  - AGITATION [None]
